FAERS Safety Report 11493973 (Version 1)
Quarter: 2015Q3

REPORT INFORMATION
  Report Type: Spontaneous
  Country: US (occurrence: US)
  Receive Date: 20150911
  Receipt Date: 20150911
  Transmission Date: 20151125
  Serious: No
  Sender: FDA-Public Use
  Company Number: US-ROCHE-1009554

PATIENT
  Age: 53 Year
  Sex: Female

DRUGS (2)
  1. PEGASYS [Suspect]
     Active Substance: PEGINTERFERON ALFA-2A
     Indication: CHRONIC HEPATITIS C
     Route: 058
     Dates: start: 20111016
  2. RIBAVIRIN. [Suspect]
     Active Substance: RIBAVIRIN
     Indication: CHRONIC HEPATITIS C
     Dosage: DAILY DOSE: 1200 MG (DIVIDED DOSE)
     Route: 065
     Dates: start: 20111016

REACTIONS (10)
  - Influenza like illness [Unknown]
  - Pruritus [Unknown]
  - Drug dose omission [Unknown]
  - Nausea [Unknown]
  - Fatigue [Unknown]
  - Pollakiuria [Unknown]
  - Migraine [Unknown]
  - Vomiting [Unknown]
  - Retching [Unknown]
  - Stomatitis [Unknown]

NARRATIVE: CASE EVENT DATE: 20111217
